FAERS Safety Report 9398481 (Version 2)
Quarter: 2013Q3

REPORT INFORMATION
  Report Type: Spontaneous
  Country: CH (occurrence: CH)
  Receive Date: 20130712
  Receipt Date: 20130725
  Transmission Date: 20140515
  Serious: Yes (Life-Threatening, Hospitalization, Other)
  Sender: FDA-Public Use
  Company Number: PHHY2013CH073784

PATIENT
  Age: 78 Year
  Sex: Male

DRUGS (4)
  1. ACENOCOUMAROL [Suspect]
     Indication: ATRIAL FIBRILLATION
     Dosage: 2 MG, UNK
     Route: 048
  2. AMOXICILLIN, CLAVULANATE [Interacting]
     Indication: PERITONSILLAR ABSCESS
     Dosage: UNK UKN, UNK
  3. AMOXICILLIN, CLAVULANATE [Interacting]
     Dosage: UNKNOWN DOSE FOR 2 DAYS
     Route: 042
  4. DIGOXIN [Concomitant]
     Indication: ATRIAL FIBRILLATION

REACTIONS (5)
  - Pharyngeal haematoma [Recovered/Resolved]
  - Obstructive airways disorder [Recovered/Resolved]
  - Odynophagia [Recovered/Resolved]
  - International normalised ratio increased [Recovered/Resolved]
  - Drug interaction [Unknown]
